FAERS Safety Report 8614313-0 (Version None)
Quarter: 2012Q3

REPORT INFORMATION
  Report Type: 
  Country: None (occurrence: None)
  Receive Date: 20120823
  Receipt Date: 20120814
  Transmission Date: 20120928
  Serious: Yes (Hospitalization)
  Sender: FDA-Public Use
  Company Number: GB-JNJFOC-20110704195

PATIENT
  Sex: Female
  Weight: 49.9 kg

DRUGS (9)
  1. AZATHIOPRINE SODIUM [Concomitant]
  2. ONDANSETRON [Concomitant]
  3. ACETAMINOPHEN [Concomitant]
  4. REMICADE [Suspect]
     Indication: CROHN'S DISEASE
     Route: 042
     Dates: start: 20081208, end: 20090807
  5. HUMIRA [Suspect]
     Dates: start: 20091002
  6. HUMIRA [Suspect]
     Indication: PRODUCT USED FOR UNKNOWN INDICATION
     Dates: start: 20110715
  7. HUMIRA [Suspect]
     Dates: start: 20110624
  8. CALCIUM + D3 [Concomitant]
  9. OMEPRAZOLE [Concomitant]

REACTIONS (1)
  - CLOSTRIDIAL INFECTION [None]
